FAERS Safety Report 10687160 (Version 2)
Quarter: 2015Q1

REPORT INFORMATION
  Report Type: Spontaneous
  Country: US (occurrence: None)
  Receive Date: 20141230
  Receipt Date: 20150212
  Transmission Date: 20150720
  Serious: Yes (Death, Hospitalization, Congenital Anomaly)
  Sender: FDA-Public Use
  Company Number: 2014HINOTH1084

PATIENT
  Age: 38 Week
  Weight: 2.8 kg

DRUGS (2)
  1. LOPINAVIR +RITONAVIR (KALETRA, ALUVIA, LPV/R (LOPINAVIR+RITONAVIR (KALETYRA, ALUVIA, LPVR)) [Concomitant]
  2. LAMIVUDINE AND ZIDOVUDINE [Suspect]
     Active Substance: LAMIVUDINE\ZIDOVUDINE
     Indication: HIV INFECTION
     Route: 064
     Dates: start: 20111130

REACTIONS (3)
  - Maternal drugs affecting foetus [None]
  - Coarctation of the aorta [None]
  - Procedural complication [None]
